FAERS Safety Report 20015666 (Version 1)
Quarter: 2021Q4

REPORT INFORMATION
  Report Type: Spontaneous
  Country: US (occurrence: None)
  Receive Date: 20211101
  Receipt Date: 20211101
  Transmission Date: 20220303
  Serious: Yes (Disabling)
  Sender: FDA-Public Use
  Company Number: None

PATIENT
  Age: 61 Year
  Sex: Female
  Weight: 69.75 kg

DRUGS (2)
  1. FLUOCINONIDE [Suspect]
     Active Substance: FLUOCINONIDE
     Indication: Eczema
     Dosage: FREQUENCY : 4 TIMES A DAY;?
     Route: 061
     Dates: start: 20210601, end: 20210930
  2. VITAMIN D [Concomitant]
     Active Substance: VITAMIN D NOS

REACTIONS (9)
  - Therapy non-responder [None]
  - Topical steroid withdrawal reaction [None]
  - Erythema [None]
  - Application site vesicles [None]
  - Pruritus [None]
  - Application site pain [None]
  - Erythema [None]
  - Scab [None]
  - Skin exfoliation [None]

NARRATIVE: CASE EVENT DATE: 20210802
